FAERS Safety Report 11302244 (Version 1)
Quarter: 2015Q3

REPORT INFORMATION
  Report Type: Spontaneous
  Country: US (occurrence: US)
  Receive Date: 20150722
  Receipt Date: 20150722
  Transmission Date: 20151125
  Serious: No
  Sender: FDA-Public Use
  Company Number: US-ELI_LILLY_AND_COMPANY-US200803005483

PATIENT
  Age: 61 Year
  Sex: Female

DRUGS (4)
  1. EVISTA [Suspect]
     Active Substance: RALOXIFENE HYDROCHLORIDE
     Indication: HORMONE REPLACEMENT THERAPY
  2. VICODIN [Concomitant]
     Active Substance: ACETAMINOPHEN\HYDROCODONE BITARTRATE
  3. MUSCLE RELAXANTS [Concomitant]
     Active Substance: UNSPECIFIED INGREDIENT
  4. CYMBALTA [Suspect]
     Active Substance: DULOXETINE HYDROCHLORIDE
     Indication: FIBROMYALGIA
     Dates: start: 2005

REACTIONS (9)
  - Mitral valve prolapse [Unknown]
  - Gout [Unknown]
  - Retching [Recovered/Resolved]
  - Nausea [Recovered/Resolved]
  - Hallucination [Unknown]
  - Drug ineffective [Not Recovered/Not Resolved]
  - Oedema peripheral [Recovered/Resolved]
  - Nervousness [Recovered/Resolved]
  - Nightmare [Unknown]

NARRATIVE: CASE EVENT DATE: 2005
